FAERS Safety Report 14413383 (Version 1)
Quarter: 2018Q1

REPORT INFORMATION
  Report Type: Other
  Country: FR (occurrence: FR)
  Receive Date: 20180119
  Receipt Date: 20180119
  Transmission Date: 20180509
  Serious: Yes (Hospitalization)
  Sender: FDA-Public Use
  Company Number: FR-GEHC-2018CSU000269

PATIENT

DRUGS (5)
  1. INSPRA                             /01362602/ [Concomitant]
     Active Substance: MONTELUKAST SODIUM
     Indication: ACUTE CORONARY SYNDROME
     Route: 048
     Dates: start: 20171212, end: 20171222
  2. IOMERON [Suspect]
     Active Substance: IOMEPROL
     Indication: ARTERIOGRAM CORONARY
     Dosage: UNK UNK, SINGLE
     Route: 041
     Dates: start: 20171213, end: 20171213
  3. BRILIQUE [Concomitant]
     Active Substance: TICAGRELOR
     Indication: ACUTE CORONARY SYNDROME
     Route: 048
     Dates: start: 20171215, end: 20171222
  4. VISIPAQUE [Suspect]
     Active Substance: IODIXANOL
     Indication: PRODUCT USED FOR UNKNOWN INDICATION
     Dosage: UNK UNK, SINGLE
     Route: 041
  5. TRIATEC                            /00885601/ [Concomitant]
     Active Substance: RAMIPRIL
     Indication: ACUTE CORONARY SYNDROME
     Route: 048
     Dates: start: 20171212, end: 20171222

REACTIONS (1)
  - Drug reaction with eosinophilia and systemic symptoms [Recovering/Resolving]

NARRATIVE: CASE EVENT DATE: 20171218
